FAERS Safety Report 8339288-3 (Version None)
Quarter: 2012Q2

REPORT INFORMATION
  Report Type: 
  Country: None (occurrence: None)
  Receive Date: 20120507
  Receipt Date: 20120426
  Transmission Date: 20120825
  Serious: Yes (Hospitalization)
  Sender: FDA-Public Use
  Company Number: HU-JNJFOC-20120413921

PATIENT
  Sex: Female
  Weight: 81 kg

DRUGS (20)
  1. PLACEBO [Suspect]
     Indication: RHEUMATOID ARTHRITIS
     Route: 058
     Dates: start: 20061004
  2. METHOTREXATE [Suspect]
     Indication: RHEUMATOID ARTHRITIS
     Route: 048
     Dates: start: 20061004
  3. METHOTREXATE [Suspect]
     Route: 048
     Dates: start: 20080618
  4. METHYLPREDNISOLONE [Concomitant]
     Route: 048
     Dates: start: 20051201
  5. POTASSIUM CHLORIDE [Concomitant]
     Route: 048
     Dates: start: 20051201
  6. ESTRADIOL [Concomitant]
  7. LOSARTAN POTASSIUM [Concomitant]
  8. METFORMIN HCL [Concomitant]
  9. PREGABALIN [Concomitant]
  10. GOLIMUMAB [Suspect]
     Indication: RHEUMATOID ARTHRITIS
     Route: 058
     Dates: start: 20120105, end: 20120205
  11. GOLIMUMAB [Suspect]
     Route: 058
     Dates: start: 20100707, end: 20110803
  12. VITAMIN D [Concomitant]
     Route: 048
     Dates: start: 20100101
  13. LEVOTHYROXINE SODIUM [Concomitant]
     Route: 048
     Dates: start: 20110727
  14. INDOMETHACIN [Concomitant]
     Route: 054
     Dates: start: 20051201
  15. BISOPROLOL FUMARATE [Concomitant]
     Route: 048
     Dates: start: 20051201
  16. GOLIMUMAB [Suspect]
     Route: 058
     Dates: start: 20110831, end: 20111105
  17. FLUCONAZOLE [Concomitant]
  18. RABEPRAZOLE SODIUM [Concomitant]
     Route: 048
     Dates: start: 20051201
  19. CARVEDILOL [Concomitant]
     Route: 048
     Dates: start: 20100101
  20. FOLIC ACID [Concomitant]
     Route: 048
     Dates: start: 20061004

REACTIONS (1)
  - CELLULITIS [None]
